FAERS Safety Report 22211590 (Version 1)
Quarter: 2023Q2

REPORT INFORMATION
  Report Type: Report from Study
  Country: JP (occurrence: JP)
  Receive Date: 20230414
  Receipt Date: 20230414
  Transmission Date: 20230722
  Serious: Yes (Life-Threatening, Hospitalization, Other)
  Sender: FDA-Public Use
  Company Number: JP-VIIV HEALTHCARE LIMITED-JP2023JPN051966

PATIENT

DRUGS (6)
  1. ZIDOVUDINE [Suspect]
     Active Substance: ZIDOVUDINE
     Indication: Adult T-cell lymphoma/leukaemia
     Dosage: 600 MG, TID
     Route: 048
     Dates: start: 20160906
  2. ZIDOVUDINE [Suspect]
     Active Substance: ZIDOVUDINE
     Dosage: 600 MG, TID
     Route: 048
  3. ZIDOVUDINE [Suspect]
     Active Substance: ZIDOVUDINE
     Dosage: 400 MG, BID
     Route: 048
     Dates: end: 20220428
  4. SUMIFERON DS [Suspect]
     Active Substance: INTERFERON ALFA-N1
     Indication: Adult T-cell lymphoma/leukaemia
     Dosage: 3 MILLION IU, QD
     Route: 058
     Dates: start: 20160906
  5. SUMIFERON DS [Suspect]
     Active Substance: INTERFERON ALFA-N1
     Dosage: 6 MILLION IU, QD
     Route: 058
  6. SUMIFERON DS [Suspect]
     Active Substance: INTERFERON ALFA-N1
     Dosage: 3 MILLION IU, QD
     Route: 058
     Dates: end: 20220428

REACTIONS (5)
  - Hypertriglyceridaemia [Recovering/Resolving]
  - Hypertriglyceridaemia [Unknown]
  - Hypertriglyceridaemia [Unknown]
  - Anti-neutrophil cytoplasmic antibody positive vasculitis [Recovering/Resolving]
  - Glomerulonephritis rapidly progressive [Recovering/Resolving]

NARRATIVE: CASE EVENT DATE: 20180213
